FAERS Safety Report 12998457 (Version 1)
Quarter: 2016Q4

REPORT INFORMATION
  Report Type: Spontaneous
  Country: US (occurrence: US)
  Receive Date: 20161202
  Receipt Date: 20161202
  Transmission Date: 20170207
  Serious: No
  Sender: FDA-Public Use
  Company Number: None

PATIENT
  Age: 47 Year
  Sex: Male

DRUGS (1)
  1. TACROLIMUS CAP 1MG [Suspect]
     Active Substance: TACROLIMUS

REACTIONS (1)
  - Hyperglycaemia [None]

NARRATIVE: CASE EVENT DATE: 20161202
